FAERS Safety Report 5220521-1 (Version None)
Quarter: 2007Q1

REPORT INFORMATION
  Report Type: 
  Country: None (occurrence: None)
  Receive Date: 20070125
  Receipt Date: 20070125
  Transmission Date: 20070707
  Serious: Yes (Hospitalization)
  Sender: FDA-Public Use
  Company Number: None

PATIENT
  Sex: Female
  Weight: 54.8852 kg

DRUGS (8)
  1. HYDROCHLOROTHIAZIDE [Suspect]
     Indication: DIURETIC THERAPY
     Dosage: PO, PRIOR TO ADMISSION
     Route: 048
  2. HYDROCHLOROTHIAZIDE [Suspect]
     Indication: HYPERTENSION
     Dosage: PO, PRIOR TO ADMISSION
     Route: 048
  3. FIORICET [Concomitant]
  4. CIPRO [Concomitant]
  5. PYRIDIUM [Concomitant]
  6. AVAPRO [Concomitant]
  7. METOPROLOL TARTRATE [Concomitant]
  8. ASPIRIN [Concomitant]

REACTIONS (4)
  - DEHYDRATION [None]
  - ELECTROLYTE IMBALANCE [None]
  - HYPONATRAEMIA [None]
  - SYNCOPE [None]
